FAERS Safety Report 4704291-9 (Version None)
Quarter: 2005Q2

REPORT INFORMATION
  Report Type: 
  Country: None (occurrence: None)
  Receive Date: 20050630
  Receipt Date: 20050601
  Transmission Date: 20051028
  Serious: Yes (Hospitalization)
  Sender: FDA-Public Use
  Company Number: 2005UW08541

PATIENT
  Age: 79 Year
  Sex: Male

DRUGS (8)
  1. CRESTOR [Suspect]
     Route: 048
     Dates: start: 20041001, end: 20050512
  2. KEFLEX [Suspect]
  3. CARDURA [Concomitant]
  4. AVAPRO [Concomitant]
  5. TILTARIUM ZR [Concomitant]
  6. ACETYLSALICYLIC ACID EC [Concomitant]
  7. FOLIC ACID [Concomitant]
  8. AVALIDE [Concomitant]

REACTIONS (7)
  - CELLULITIS [None]
  - DIARRHOEA [None]
  - HAEMODIALYSIS [None]
  - NAUSEA [None]
  - RENAL FAILURE ACUTE [None]
  - VASCULITIS [None]
  - VOMITING [None]
